FAERS Safety Report 19416212 (Version 6)
Quarter: 2024Q3

REPORT INFORMATION
  Report Type: Report from Study
  Country: US (occurrence: US)
  Receive Date: 20210614
  Receipt Date: 20240822
  Transmission Date: 20241017
  Serious: Yes (Other)
  Sender: TAKEDA
  Company Number: US-TAKEDA-2021TUS010730

PATIENT
  Sex: Female

DRUGS (2)
  1. HUMAN IMMUNOGLOBULIN G [Suspect]
     Active Substance: HUMAN IMMUNOGLOBULIN G
     Indication: Primary immunodeficiency syndrome
     Dosage: UNK
     Route: 042
  2. HUMAN IMMUNOGLOBULIN G [Suspect]
     Active Substance: HUMAN IMMUNOGLOBULIN G
     Indication: Immunodeficiency common variable

REACTIONS (14)
  - Kidney infection [Unknown]
  - Drug hypersensitivity [Unknown]
  - Congenital mitochondrial cytopathy [Unknown]
  - Multiple allergies [Unknown]
  - Nervous system disorder [Unknown]
  - Connective tissue disorder [Unknown]
  - Tendon rupture [Unknown]
  - Thyroid cyst [Unknown]
  - Infected bite [Unknown]
  - Skin infection [Unknown]
  - Inappropriate schedule of product administration [Unknown]
  - Immunoglobulins increased [Unknown]
  - Infection [Unknown]
  - White blood cell count decreased [Unknown]
